FAERS Safety Report 22198716 (Version 1)
Quarter: 2023Q2

REPORT INFORMATION
  Report Type: Spontaneous
  Country: CO (occurrence: CO)
  Receive Date: 20230411
  Receipt Date: 20230411
  Transmission Date: 20230721
  Serious: Yes (Death, Hospitalization, Other)
  Sender: FDA-Public Use
  Company Number: CO-TAKEDA-2023TUS036645

PATIENT
  Age: 53 Year
  Sex: Female
  Weight: 45 kg

DRUGS (1)
  1. ICLUSIG [Suspect]
     Active Substance: PONATINIB
     Indication: Chronic myeloid leukaemia
     Dosage: 45 MILLIGRAM, QD
     Route: 048
     Dates: start: 20220803, end: 20230403

REACTIONS (5)
  - Cardio-respiratory arrest [Fatal]
  - Leukocytosis [Unknown]
  - Splenomegaly [Unknown]
  - Anaemia [Unknown]
  - Therapy non-responder [Unknown]

NARRATIVE: CASE EVENT DATE: 20230402
